FAERS Safety Report 6188700-7 (Version None)
Quarter: 2009Q2

REPORT INFORMATION
  Report Type: 
  Country: None (occurrence: None)
  Receive Date: 20090513
  Receipt Date: 20090504
  Transmission Date: 20091009
  Serious: Yes (Death, Other)
  Sender: FDA-Public Use
  Company Number: HQWYE225603NOV04

PATIENT
  Sex: Female
  Weight: 61.29 kg

DRUGS (5)
  1. PREMPRO [Suspect]
     Indication: PROPHYLAXIS
  2. PREMPRO [Suspect]
     Indication: HORMONE REPLACEMENT THERAPY
  3. ESTRATEST H.S. [Suspect]
     Indication: HORMONE REPLACEMENT THERAPY
  4. CYCRIN [Suspect]
     Indication: HORMONE REPLACEMENT THERAPY
  5. PREMARIN [Suspect]
     Indication: HORMONE REPLACEMENT THERAPY

REACTIONS (1)
  - BREAST CANCER METASTATIC [None]
